FAERS Safety Report 9560127 (Version 1)
Quarter: 2013Q3

REPORT INFORMATION
  Report Type: Spontaneous
  Country: US (occurrence: US)
  Receive Date: 20130927
  Receipt Date: 20130927
  Transmission Date: 20140515
  Serious: No
  Sender: FDA-Public Use
  Company Number: US-BIOGENIDEC-2013BI047522

PATIENT
  Age: 42 Year
  Sex: Female

DRUGS (4)
  1. TECFIDERA [Suspect]
     Indication: MULTIPLE SCLEROSIS
     Route: 048
     Dates: start: 20130511
  2. TECFIDERA [Suspect]
     Indication: MULTIPLE SCLEROSIS
     Route: 048
     Dates: start: 20130518
  3. CLARITIN [Concomitant]
  4. MINOCYCLINE [Concomitant]

REACTIONS (3)
  - Diarrhoea [Recovered/Resolved]
  - Erythema [Unknown]
  - Pruritus [Not Recovered/Not Resolved]
